FAERS Safety Report 8391641-8 (Version None)
Quarter: 2012Q1

REPORT INFORMATION
  Report Type: 
  Country: None (occurrence: None)
  Receive Date: 20120323
  Receipt Date: 20110309
  Transmission Date: 20120608
  Serious: Yes (Other)
  Sender: FDA-Public Use
  Company Number: 163-21880-11031381

PATIENT
  Age: 79 Year
  Sex: Female
  Weight: 77.1115 kg

DRUGS (11)
  1. FOILC ACID (FOLIC ACID) [Concomitant]
  2. ASPIRIN [Concomitant]
  3. CALCITONIN (CALCITONIN) [Concomitant]
  4. LORAZEPAM [Concomitant]
  5. REVLIMID [Suspect]
     Indication: MULTIPLE MYELOMA
     Dosage: 25 MG, 1 IN 1 D, PO ; 20 MG, DAILY 21/7, PO
     Route: 048
     Dates: start: 20100717
  6. REVLIMID [Suspect]
     Indication: MULTIPLE MYELOMA
     Dosage: 25 MG, 1 IN 1 D, PO ; 20 MG, DAILY 21/7, PO
     Route: 048
     Dates: start: 20101201
  7. REVLIMID [Suspect]
  8. CENTRUM SILVER (CENTRUM SILVER) [Concomitant]
  9. AMLODIPINE [Concomitant]
  10. HYMAX (HYOSCYAMINE) [Concomitant]
  11. PANTOPRAZOLE [Concomitant]

REACTIONS (1)
  - HAEMOGLOBIN DECREASED [None]
